APPROVED DRUG PRODUCT: DEXTROSE 25%
Active Ingredient: DEXTROSE
Strength: 250MG/ML
Dosage Form/Route: INJECTABLE;INJECTION
Application: N019445 | Product #002
Applicant: HOSPIRA INC
Approved: Nov 23, 1998 | RLD: Yes | RS: Yes | Type: RX